FAERS Safety Report 7254892-1 (Version None)
Quarter: 2011Q1

REPORT INFORMATION
  Report Type: 
  Country: None (occurrence: None)
  Receive Date: 20110129
  Receipt Date: 20100317
  Transmission Date: 20110831
  Serious: No
  Sender: FDA-Public Use
  Company Number: US-ABBOTT-10P-163-0633581-00

PATIENT
  Sex: Female

DRUGS (6)
  1. CATAPRES [Concomitant]
     Indication: HYPERTENSION
  2. LABELATOL [Concomitant]
     Indication: HYPERTENSION
  3. UNKNOWN PREMEDICATION [Concomitant]
     Indication: PREMEDICATION
     Dates: start: 20090901, end: 20090901
  4. ANTIBIOTICS [Concomitant]
     Indication: TOOTH INFECTION
     Dates: start: 20090901, end: 20090901
  5. HUMIRA [Suspect]
     Indication: PSORIASIS
     Route: 058
     Dates: start: 20090301
  6. PLENDIL [Concomitant]
     Indication: HYPERTENSION

REACTIONS (5)
  - ERYTHEMA [None]
  - DENTAL CARIES [None]
  - DERMATITIS [None]
  - TOOTH INFECTION [None]
  - GINGIVAL ABSCESS [None]
